FAERS Safety Report 8418866-7 (Version None)
Quarter: 2012Q2

REPORT INFORMATION
  Report Type: 
  Country: None (occurrence: None)
  Receive Date: 20120607
  Receipt Date: 20120606
  Transmission Date: 20120825
  Serious: No
  Sender: FDA-Public Use
  Company Number: US-BAYER-2012-056239

PATIENT
  Age: 51 Year
  Sex: Female

DRUGS (2)
  1. GADAVIST [Suspect]
     Indication: NUCLEAR MAGNETIC RESONANCE IMAGING
     Dosage: UNK
     Dates: start: 20120523, end: 20120523
  2. GADAVIST [Suspect]
     Dosage: UNK
     Dates: start: 20120605, end: 20120605

REACTIONS (1)
  - VOMITING [None]
